FAERS Safety Report 23679543 (Version 2)
Quarter: 2024Q2

REPORT INFORMATION
  Report Type: Spontaneous
  Country: US (occurrence: US)
  Receive Date: 20240327
  Receipt Date: 20240402
  Transmission Date: 20240715
  Serious: No
  Sender: FDA-Public Use
  Company Number: US-PFIZER INC-PV202400040488

PATIENT
  Age: 75 Year
  Sex: Female

DRUGS (1)
  1. IBRANCE [Suspect]
     Active Substance: PALBOCICLIB
     Dosage: 100 MG, CYCLIC (TAKE 1 TABLET (100 MG TOTAL) BY MOUTH DAILY X 21 DAYS, REPEAT EVERY 28 DAYS (7 DAYS
     Route: 048

REACTIONS (5)
  - Nausea [Unknown]
  - Constipation [Unknown]
  - Dyspnoea [Unknown]
  - Hypersensitivity [Unknown]
  - Nasopharyngitis [Unknown]

NARRATIVE: CASE EVENT DATE: 20240301
